FAERS Safety Report 7774349-9 (Version None)
Quarter: 2011Q3

REPORT INFORMATION
  Report Type: 
  Country: None (occurrence: None)
  Receive Date: 20110923
  Receipt Date: 20110919
  Transmission Date: 20111222
  Serious: Yes (Death, Life-Threatening, Hospitalization, Other)
  Sender: FDA-Public Use
  Company Number: PHHY2011EC83207

PATIENT
  Sex: Female

DRUGS (3)
  1. DIOVAN HCT [Suspect]
     Indication: HYPERTENSION
     Dosage: 1 DF, (160/12.MG) DAILY
     Route: 048
     Dates: start: 20070926, end: 20110911
  2. MICARDIS [Concomitant]
     Dosage: UNK UKN, UNK
  3. BROTIZOLAM [Concomitant]
     Dosage: UNK UKN, UNK

REACTIONS (6)
  - HYPERTENSION [None]
  - TRANSIENT ISCHAEMIC ATTACK [None]
  - MYOCARDIAL INFARCTION [None]
  - RENAL FAILURE [None]
  - RESPIRATORY ARREST [None]
  - HEADACHE [None]
